FAERS Safety Report 5200400-6 (Version None)
Quarter: 2007Q1

REPORT INFORMATION
  Report Type: 
  Country: None (occurrence: None)
  Receive Date: 20070105
  Receipt Date: 20061228
  Transmission Date: 20070707
  Serious: Yes (Hospitalization, Other)
  Sender: FDA-Public Use
  Company Number: US-PFIZER INC-2007000701

PATIENT
  Sex: Female
  Weight: 90.7 kg

DRUGS (13)
  1. LIPITOR [Suspect]
     Indication: BLOOD CHOLESTEROL
  2. LYRICA [Suspect]
     Indication: NEUROPATHY PERIPHERAL
  3. QUININE SULFATE [Suspect]
     Indication: MUSCLE SPASMS
     Dates: start: 20060101, end: 20060101
  4. ANCEF [Suspect]
     Indication: RASH
  5. ZETIA [Suspect]
     Indication: BLOOD CHOLESTEROL
  6. MOTRIN [Concomitant]
  7. PRILOSEC [Concomitant]
  8. XANAX [Concomitant]
  9. CLONIDINE [Concomitant]
  10. HYDROCHLOROTHIAZIDE [Concomitant]
  11. TORADOL [Concomitant]
  12. PLAVIX [Concomitant]
  13. DIFLUCAN [Concomitant]

REACTIONS (12)
  - ADVERSE DRUG REACTION [None]
  - ANAPHYLACTIC REACTION [None]
  - ANTINUCLEAR ANTIBODY POSITIVE [None]
  - CEREBRAL HAEMORRHAGE [None]
  - EYE IRRITATION [None]
  - INTESTINAL OBSTRUCTION [None]
  - MUSCLE SPASMS [None]
  - PAIN [None]
  - PAIN IN EXTREMITY [None]
  - RASH [None]
  - SWELLING [None]
  - VISION BLURRED [None]
